FAERS Safety Report 17844002 (Version 1)
Quarter: 2020Q2

REPORT INFORMATION
  Report Type: Spontaneous
  Country: CN (occurrence: CN)
  Receive Date: 20200601
  Receipt Date: 20200601
  Transmission Date: 20200714
  Serious: Yes (Other)
  Sender: FDA-Public Use
  Company Number: CN-ROCHE-2609977

PATIENT
  Age: 70 Year
  Sex: Male

DRUGS (5)
  1. CISPLATIN. [Concomitant]
     Active Substance: CISPLATIN
     Indication: GASTRIC CANCER STAGE III
     Route: 041
     Dates: start: 201907, end: 201911
  2. CARBOPLATIN. [Concomitant]
     Active Substance: CARBOPLATIN
     Indication: GASTRIC CANCER STAGE III
     Route: 041
     Dates: start: 201907, end: 201911
  3. XELODA [Suspect]
     Active Substance: CAPECITABINE
     Indication: GASTRIC CANCER STAGE III
     Dosage: AT 2.0 IN THE MORNING AND 1.5 IN THE EVENING
     Route: 048
  4. 5-FLUOROURACIL [FLUOROURACIL] [Concomitant]
     Active Substance: FLUOROURACIL
     Indication: GASTRIC CANCER STAGE III
     Route: 042
     Dates: start: 201907, end: 201911
  5. HERCEPTIN [Suspect]
     Active Substance: TRASTUZUMAB
     Indication: GASTRIC CANCER STAGE III
     Route: 042
     Dates: start: 201907, end: 201911

REACTIONS (3)
  - Renal failure [Unknown]
  - Constipation [Unknown]
  - Bone marrow failure [Recovered/Resolved]
